FAERS Safety Report 14469703 (Version 1)
Quarter: 2018Q1

REPORT INFORMATION
  Report Type: Spontaneous
  Country: US (occurrence: US)
  Receive Date: 20180131
  Receipt Date: 20180131
  Transmission Date: 20180509
  Serious: Yes (Other)
  Sender: FDA-Public Use
  Company Number: US-ELI_LILLY_AND_COMPANY-US201801010580

PATIENT
  Age: 43 Year
  Sex: Male
  Weight: 108.84 kg

DRUGS (1)
  1. TALTZ [Suspect]
     Active Substance: IXEKIZUMAB
     Indication: PSORIASIS
     Dosage: 80 MG, UNKNOWN
     Route: 058
     Dates: start: 20170317, end: 20171222

REACTIONS (2)
  - Renal cell carcinoma [Recovered/Resolved]
  - Diabetes mellitus [Unknown]
